FAERS Safety Report 8391607-8 (Version None)
Quarter: 2012Q1

REPORT INFORMATION
  Report Type: 
  Country: None (occurrence: None)
  Receive Date: 20120323
  Receipt Date: 20110329
  Transmission Date: 20120608
  Serious: Yes (Hospitalization, Other)
  Sender: FDA-Public Use
  Company Number: 163-21880-11033424

PATIENT
  Age: 81 Year
  Sex: Female

DRUGS (9)
  1. FLOVENT [Concomitant]
  2. REVLIMID [Suspect]
     Indication: MULTIPLE MYELOMA
     Dosage: 15 MG, D1-21, PO
     Route: 048
     Dates: start: 20110316
  3. COUMADIN [Concomitant]
  4. CARDIZEM [Concomitant]
  5. CLARITIN [Concomitant]
  6. POTASSIUM CHLORIDE [Concomitant]
  7. BETAMETHASONE [Concomitant]
  8. GLUCOSAMINE CHONDROITIN (GLUCOSAMINE W/CHONDROITIN SULFATE) [Concomitant]
  9. CALCIUM CARBONATE [Concomitant]

REACTIONS (7)
  - DIZZINESS [None]
  - THROMBOCYTOPENIA [None]
  - ASTHENIA [None]
  - LEUKOPENIA [None]
  - SYNCOPE [None]
  - PALPITATIONS [None]
  - DYSPNOEA [None]
